FAERS Safety Report 5410811-1 (Version None)
Quarter: 2007Q3

REPORT INFORMATION
  Report Type: 
  Country: None (occurrence: None)
  Receive Date: 20070810
  Receipt Date: 20070806
  Transmission Date: 20080115
  Serious: Yes (Other)
  Sender: FDA-Public Use
  Company Number: PHEH2007US01898

PATIENT
  Age: 68 Year
  Sex: Female

DRUGS (5)
  1. ZOMETA [Suspect]
     Indication: METASTASES TO BONE
     Dosage: 4 MG QMO
     Route: 016
     Dates: start: 20020401, end: 20060801
  2. ZOMETA [Suspect]
     Dosage: 3 MG, UNK
     Dates: start: 20060101, end: 20060801
  3. CHEMOTHERAPEUTICS NOS [Concomitant]
  4. NAVELBINE [Concomitant]
     Indication: LUNG NEOPLASM MALIGNANT
     Dosage: 50 MG, BIW
     Dates: start: 20020401, end: 20020601
  5. GEMZAR [Concomitant]
     Indication: LUNG NEOPLASM MALIGNANT
     Dosage: 1800 MG, BIW
     Dates: start: 20020401, end: 20020601

REACTIONS (12)
  - BLOOD CREATININE INCREASED [None]
  - BONE DISORDER [None]
  - DENTAL CARIES [None]
  - GINGIVAL INFECTION [None]
  - INFLAMMATION [None]
  - OEDEMA MOUTH [None]
  - ORAL DISORDER [None]
  - OSTEOMYELITIS [None]
  - OSTEONECROSIS [None]
  - PAIN [None]
  - SOFT TISSUE INFECTION [None]
  - TOOTH EXTRACTION [None]
